FAERS Safety Report 25494646 (Version 1)
Quarter: 2025Q2

REPORT INFORMATION
  Report Type: Spontaneous
  Country: US (occurrence: None)
  Receive Date: 20250628
  Receipt Date: 20250628
  Transmission Date: 20250717
  Serious: Yes (unspecified)
  Sender: FDA-CTU
  Company Number: None

PATIENT
  Age: 66 Year
  Sex: Male

DRUGS (1)
  1. COSENTYX [Suspect]
     Active Substance: SECUKINUMAB
     Indication: Hidradenitis
     Dosage: FREQUENCY : MONTHLY;?

REACTIONS (7)
  - Skin lesion [None]
  - Furuncle [None]
  - Condition aggravated [None]
  - Joint swelling [None]
  - Arthralgia [None]
  - Arthralgia [None]
  - Back pain [None]
